FAERS Safety Report 16018054 (Version 1)
Quarter: 2019Q1

REPORT INFORMATION
  Report Type: Report from Study
  Country: PT (occurrence: PT)
  Receive Date: 20190228
  Receipt Date: 20190228
  Transmission Date: 20190418
  Serious: Yes (Other)
  Sender: FDA-Public Use
  Company Number: PT-ASTRAZENECA-2019SE30097

PATIENT
  Age: 69 Year
  Sex: Male

DRUGS (1)
  1. OMEPRAZOLE. [Suspect]
     Active Substance: OMEPRAZOLE
     Indication: GASTROOESOPHAGEAL REFLUX DISEASE
     Dosage: UNK
     Route: 065

REACTIONS (3)
  - Dyspnoea [Unknown]
  - Urticaria [Unknown]
  - Anaphylactic reaction [Unknown]
